FAERS Safety Report 19741324 (Version 2)
Quarter: 2021Q4

REPORT INFORMATION
  Report Type: Report from Study
  Country: US (occurrence: US)
  Receive Date: 20210824
  Receipt Date: 20211011
  Transmission Date: 20220303
  Serious: Yes (Other)
  Sender: FDA-Public Use
  Company Number: US-MERCK HEALTHCARE KGAA-9259317

PATIENT
  Age: 34 Year
  Sex: Female

DRUGS (2)
  1. REBIF [Suspect]
     Active Substance: INTERFERON BETA-1A
     Indication: Multiple sclerosis
     Route: 058
     Dates: start: 20130118, end: 20160118
  2. REBIF [Suspect]
     Active Substance: INTERFERON BETA-1A
     Dosage: REBIF PREFILLED SYRINGE
     Route: 058
     Dates: start: 20210816

REACTIONS (1)
  - Hysterectomy [Unknown]

NARRATIVE: CASE EVENT DATE: 20160101
